FAERS Safety Report 11908978 (Version 1)
Quarter: 2016Q1

REPORT INFORMATION
  Report Type: Not Available
  Country: IN (occurrence: IN)
  Receive Date: 20160111
  Receipt Date: 20160111
  Transmission Date: 20160526
  Serious: Yes (Other)
  Sender: FDA-Public Use
  Company Number: IN-ANIPHARMA-2016-IN-000002

PATIENT
  Age: 23 Year
  Sex: Female

DRUGS (1)
  1. VALPROIC ACID (NON-SPECIFIC) [Suspect]
     Active Substance: VALPROIC ACID

REACTIONS (1)
  - Serotonin syndrome [Unknown]
